FAERS Safety Report 23098479 (Version 1)
Quarter: 2023Q4

REPORT INFORMATION
  Report Type: Spontaneous
  Country: US (occurrence: None)
  Receive Date: 20231023
  Receipt Date: 20231023
  Transmission Date: 20240110
  Serious: Yes (Other)
  Sender: FDA-Public Use
  Company Number: None

PATIENT
  Age: 64 Year
  Sex: Male

DRUGS (23)
  1. HUMIRA [Suspect]
     Active Substance: ADALIMUMAB
     Indication: Psoriatic arthropathy
     Route: 058
     Dates: start: 20200212
  2. ALLOPURINOL [Concomitant]
     Active Substance: ALLOPURINOL
  3. AMLODIPINE [Concomitant]
  4. ATORVASTATIN [Concomitant]
  5. DESONIDE CRE [Concomitant]
  6. DEXAMETHASON EXL [Concomitant]
  7. FLUOROMETHOL SUS [Concomitant]
  8. FOLIC ACID TAB [Concomitant]
  9. GABAPENTIN [Concomitant]
     Active Substance: GABAPENTIN
  10. GAVILYTE-G SOL [Concomitant]
  11. LISINOPH/hctz [Concomitant]
  12. METHOCARBAMOL [Concomitant]
     Active Substance: METHOCARBAMOL
  13. METHOTREXATE [Concomitant]
     Active Substance: METHOTREXATE
  14. METHOTREXATE [Concomitant]
     Active Substance: METHOTREXATE
  15. METHYLPREDNISOLONE [Concomitant]
     Active Substance: METHYLPREDNISOLONE
  16. MONTELUKAST [Concomitant]
     Active Substance: MONTELUKAST SODIUM
  17. ORENCIA CLCK INJ [Concomitant]
  18. OXYCODONE [Concomitant]
     Active Substance: OXYCODONE
  19. PREDNISONE [Concomitant]
     Active Substance: PREDNISONE
  20. PREDNISONE [Concomitant]
     Active Substance: PREDNISONE
  21. TAMSULOSIN [Concomitant]
     Active Substance: TAMSULOSIN
  22. TESTOST CYP INJ [Concomitant]
  23. XELJANZ XR [Concomitant]
     Active Substance: TOFACITINIB CITRATE

REACTIONS (2)
  - Surgery [None]
  - Intentional dose omission [None]

NARRATIVE: CASE EVENT DATE: 20231013
